FAERS Safety Report 8451765-3 (Version None)
Quarter: 2012Q2

REPORT INFORMATION
  Report Type: 
  Country: None (occurrence: None)
  Receive Date: 20120620
  Receipt Date: 20120417
  Transmission Date: 20120825
  Serious: No
  Sender: FDA-Public Use
  Company Number: US-VERTEX PHARMACEUTICALS INC.-AE-2012-003847

PATIENT
  Sex: Male
  Weight: 75.364 kg

DRUGS (4)
  1. PEGINTERFERON ALFA-2A [Concomitant]
     Indication: HEPATITIS C
     Route: 058
     Dates: start: 20120317
  2. RIBAVIRIN [Concomitant]
     Indication: HEPATITIS C
     Route: 048
     Dates: start: 20120316
  3. INCIVEK [Suspect]
     Indication: HEPATITIS C
     Route: 048
     Dates: start: 20120317
  4. RIBAVIRIN [Concomitant]

REACTIONS (8)
  - HAEMATOCRIT DECREASED [None]
  - PHOTOPHOBIA [None]
  - DYSPNOEA [None]
  - DIZZINESS [None]
  - ANAL PRURITUS [None]
  - VISUAL IMPAIRMENT [None]
  - ANAEMIA [None]
  - NAUSEA [None]
